FAERS Safety Report 11734293 (Version 1)
Quarter: 2015Q4

REPORT INFORMATION
  Report Type: Spontaneous
  Country: US (occurrence: None)
  Receive Date: 20151112
  Receipt Date: 20151112
  Transmission Date: 20160304
  Serious: Yes (Life-Threatening, Hospitalization, Other)
  Sender: FDA-Public Use
  Company Number: None

PATIENT
  Age: 7 Year
  Sex: Female
  Weight: 31.3 kg

DRUGS (1)
  1. DIASTAT [Suspect]
     Active Substance: DIAZEPAM
     Indication: PRODUCT USED FOR UNKNOWN INDICATION
     Dosage: 10 MG X3 WITH ONSET STATUS
     Route: 054
     Dates: start: 20150401, end: 20151108

REACTIONS (5)
  - Seizure [None]
  - Product substitution issue [None]
  - Device issue [None]
  - Drug ineffective [None]
  - Product physical consistency issue [None]

NARRATIVE: CASE EVENT DATE: 20151108
